FAERS Safety Report 5637736-0 (Version None)
Quarter: 2008Q1

REPORT INFORMATION
  Report Type: 
  Country: None (occurrence: None)
  Receive Date: 20080220
  Receipt Date: 20080207
  Transmission Date: 20080703
  Serious: Yes (Other)
  Sender: FDA-Public Use
  Company Number: MC200800074

PATIENT
  Sex: Female

DRUGS (2)
  1. ANGIOMAX [Suspect]
     Indication: PERCUTANEOUS CORONARY INTERVENTION
     Dosage: ML, BOLUS, IV BOLUS
     Route: 040
  2. PLAVIX [Concomitant]

REACTIONS (2)
  - DRUG ADMINISTRATION ERROR [None]
  - STENT OCCLUSION [None]
